FAERS Safety Report 4680934-3 (Version None)
Quarter: 2005Q2

REPORT INFORMATION
  Report Type: 
  Country: None (occurrence: None)
  Receive Date: 20050601
  Receipt Date: 20050601
  Transmission Date: 20051028
  Serious: No
  Sender: FDA-Public Use
  Company Number: None

PATIENT
  Sex: Male
  Weight: 70 kg

DRUGS (2)
  1. TEMOZOLAMIDE [Suspect]
     Indication: GLIOBLASTOMA MULTIFORME
     Dosage: 145 MG DAILY FOR 6 WEEKS DURING RT BEGINNING THE NIGHT BEFORE 1ST DOSE OF RT.
     Dates: start: 20050405
  2. RADIATION THERAPY [Suspect]
     Dosage: 2GY X 30 FRACTIONS X 6 WEEKS CONCURRENT CHEMOTHERAPY WITH TEMOZOLAMIDE

REACTIONS (7)
  - HEMIPARESIS [None]
  - HYPONATRAEMIA [None]
  - LIVER FUNCTION TEST ABNORMAL [None]
  - NEOPLASM PROGRESSION [None]
  - OEDEMA [None]
  - PLATELET COUNT DECREASED [None]
  - WHITE BLOOD CELL COUNT DECREASED [None]
